FAERS Safety Report 8157791-6 (Version None)
Quarter: 2012Q1

REPORT INFORMATION
  Report Type: 
  Country: None (occurrence: None)
  Receive Date: 20120222
  Receipt Date: 20111102
  Transmission Date: 20120608
  Serious: No
  Sender: FDA-Public Use
  Company Number: US-ASTRAZENECA-2011SE42292

PATIENT
  Sex: Female

DRUGS (3)
  1. ZESTORETIC [Suspect]
     Dosage: GENERIC
     Route: 065
  2. ZESTORETIC [Suspect]
     Dosage: 20/12.5 MG
     Route: 048
     Dates: start: 20110611
  3. ZESTORETIC [Suspect]
     Indication: HYPERTENSION
     Dosage: 20/12.5 MG
     Route: 048

REACTIONS (3)
  - BLOOD PRESSURE INCREASED [None]
  - DRUG INEFFECTIVE [None]
  - POLLAKIURIA [None]
